FAERS Safety Report 10245192 (Version 2)
Quarter: 2014Q2

REPORT INFORMATION
  Report Type: Report from Study
  Country: US (occurrence: US)
  Receive Date: 20140618
  Receipt Date: 20140618
  Transmission Date: 20141212
  Serious: Yes (Hospitalization)
  Sender: FDA-Public Use
  Company Number: US-BRISTOL-MYERS SQUIBB COMPANY-20197406

PATIENT
  Age: 54 Year
  Sex: Female
  Weight: 53 kg

DRUGS (15)
  1. METRELEPTIN [Suspect]
     Indication: CONGENITAL GENERALISED LIPODYSTROPHY
     Dosage: 5.5 MG 14OCT08-13DEC09?6MG 14DEC09-PRESENT LOT:670353F EXD-JUL2012
     Route: 058
     Dates: start: 200208
  2. PROGRAF [Concomitant]
  3. CELLCEPT [Concomitant]
  4. OMEGA-3 [Concomitant]
  5. MAGNESIUM OXIDE [Concomitant]
  6. MVI [Concomitant]
  7. FENOFIBRATE [Concomitant]
  8. DILTIAZEM ER [Concomitant]
  9. METFORMIN [Concomitant]
  10. METOPROLOL TARTRATE [Concomitant]
  11. FERREX [Concomitant]
  12. LEVOTHYROXINE [Concomitant]
  13. INSULIN LISPRO [Concomitant]
     Dosage: QHS
     Route: 058
  14. ASA [Concomitant]
  15. INSULIN NPH [Concomitant]
     Dosage: WITH BREAKFAST
     Route: 058

REACTIONS (1)
  - Meningioma [Recovered/Resolved]
